FAERS Safety Report 9571559 (Version 1)
Quarter: 2013Q3

REPORT INFORMATION
  Report Type: Spontaneous
  Country: US (occurrence: None)
  Receive Date: 20130930
  Receipt Date: 20130930
  Transmission Date: 20140515
  Serious: Yes (Life-Threatening)
  Sender: FDA-Public Use
  Company Number: None

PATIENT
  Age: 84 Year
  Sex: Male
  Weight: 70 kg

DRUGS (4)
  1. ACTIVASE [Suspect]
     Indication: ISCHAEMIC STROKE
     Route: 042
  2. 0.9% SODIUM CHLORIDE [Concomitant]
  3. LABETALOL [Concomitant]
  4. HYDRALAZINE [Concomitant]

REACTIONS (5)
  - Blood pressure increased [None]
  - General physical health deterioration [None]
  - Haemorrhagic transformation stroke [None]
  - Brain oedema [None]
  - Cerebral atrophy [None]
